FAERS Safety Report 9255061 (Version 1)
Quarter: 2013Q2

REPORT INFORMATION
  Report Type: Report from Study
  Country: JP (occurrence: JP)
  Receive Date: 20130425
  Receipt Date: 20130503
  Transmission Date: 20140414
  Serious: Yes (Death)
  Sender: FDA-Public Use
  Company Number: JP-JNJFOC-20130210337

PATIENT
  Sex: Male
  Weight: 62 kg

DRUGS (3)
  1. ONE DURO [Suspect]
     Indication: CANCER PAIN
     Route: 062
     Dates: start: 20121106
  2. ANPEC (MORPHINE HYDROCHLORIDE) [Suspect]
     Indication: CANCER PAIN
     Route: 054
     Dates: start: 20121106, end: 20121119
  3. OXYCONTIN [Suspect]
     Indication: CANCER PAIN
     Route: 048
     Dates: start: 20121025

REACTIONS (1)
  - Lung neoplasm malignant [Fatal]
